FAERS Safety Report 6588619-3 (Version None)
Quarter: 2010Q1

REPORT INFORMATION
  Report Type: 
  Country: None (occurrence: None)
  Receive Date: 20100218
  Receipt Date: 20091123
  Transmission Date: 20100710
  Serious: No
  Sender: FDA-Public Use
  Company Number: US-ALLERGAN-0916351US

PATIENT
  Age: 66 Year
  Sex: Female

DRUGS (2)
  1. BOTOX COSMETIC [Suspect]
     Indication: SKIN WRINKLING
     Dosage: 36 UNITS, SINGLE
     Route: 030
     Dates: start: 20091001, end: 20091001
  2. SANDOSTATIN [Concomitant]
     Dosage: UNK

REACTIONS (2)
  - HEADACHE [None]
  - HYPOAESTHESIA FACIAL [None]
